FAERS Safety Report 25178807 (Version 3)
Quarter: 2025Q2

REPORT INFORMATION
  Report Type: Report from Study
  Country: US (occurrence: US)
  Receive Date: 20250409
  Receipt Date: 20250606
  Transmission Date: 20250716
  Serious: Yes (Other)
  Sender: ABBVIE
  Company Number: US-ABBVIE-6211367

PATIENT
  Age: 22 Year
  Sex: Female

DRUGS (1)
  1. HUMIRA [Suspect]
     Active Substance: ADALIMUMAB
     Indication: Uveitis
     Dosage: CITRATE FREE
     Route: 058
     Dates: start: 202412, end: 202502

REACTIONS (7)
  - Macular oedema [Not Recovered/Not Resolved]
  - Uveitis [Recovering/Resolving]
  - Pruritus [Not Recovered/Not Resolved]
  - Dyschromatopsia [Recovering/Resolving]
  - Inflammation [Not Recovered/Not Resolved]
  - Vision blurred [Recovering/Resolving]
  - Photophobia [Recovering/Resolving]

NARRATIVE: CASE EVENT DATE: 20250301
